FAERS Safety Report 5604157-6 (Version None)
Quarter: 2008Q1

REPORT INFORMATION
  Report Type: 
  Country: None (occurrence: None)
  Receive Date: 20080123
  Receipt Date: 20080123
  Transmission Date: 20080703
  Serious: Yes (Other)
  Sender: FDA-Public Use
  Company Number: None

PATIENT
  Age: 73 Year
  Sex: Female

DRUGS (5)
  1. REVLIMID [Suspect]
     Indication: MULTIPLE MYELOMA
     Dosage: 15MG DAILY PO
     Route: 048
     Dates: start: 20080111, end: 20080117
  2. VICODIN [Concomitant]
  3. MORPHINE [Concomitant]
  4. BISPHOSPHONATE [Concomitant]
  5. REVLIMID [Concomitant]

REACTIONS (1)
  - MUSCLE SPASMS [None]
